FAERS Safety Report 8404739-2 (Version None)
Quarter: 2012Q2

REPORT INFORMATION
  Report Type: 
  Country: None (occurrence: None)
  Receive Date: 20120601
  Receipt Date: 20120529
  Transmission Date: 20120825
  Serious: Yes (Other)
  Sender: FDA-Public Use
  Company Number: SE-PFIZER INC-2012128576

PATIENT
  Age: 68 Year
  Sex: Male
  Weight: 63 kg

DRUGS (6)
  1. NEBIDO [Concomitant]
     Indication: BLOOD FOLLICLE STIMULATING HORMONE DECREASED
  2. LEVOTHYROXINE SODIUM [Concomitant]
     Indication: HYPOTHYROIDISM
     Dosage: UNK
     Dates: start: 20030228
  3. SOMATROPIN [Suspect]
     Indication: HYPOPITUITARISM
     Dosage: 0.3 MG/DAY, 7 INJECTIONS/WEEK
     Dates: start: 20041022, end: 20120131
  4. HYDROCORTISONE [Concomitant]
     Indication: BLOOD CORTICOTROPHIN DECREASED
     Dosage: UNK
     Dates: start: 20030228
  5. NEBIDO [Concomitant]
     Indication: HYPOGONADISM MALE
     Dosage: UNK
     Dates: start: 20060721, end: 20120131
  6. NEBIDO [Concomitant]
     Indication: BLOOD LUTEINISING HORMONE DECREASED

REACTIONS (1)
  - PROSTATE CANCER [None]
